FAERS Safety Report 10452473 (Version 1)
Quarter: 2014Q3

REPORT INFORMATION
  Report Type: Spontaneous
  Country: CA (occurrence: CA)
  Receive Date: 20140915
  Receipt Date: 20140915
  Transmission Date: 20150326
  Serious: Yes (Hospitalization, Other)
  Sender: FDA-Public Use
  Company Number: CA-BAYER-2014-134311

PATIENT
  Age: 54 Year
  Weight: 95 kg

DRUGS (8)
  1. ADCIRCA [Concomitant]
     Active Substance: TADALAFIL
     Indication: PULMONARY HYPERTENSION
     Dosage: DAILY DOSE 40MG
     Dates: start: 20121121
  2. FUROSEMIDE. [Concomitant]
     Active Substance: FUROSEMIDE
     Indication: PULMONARY HYPERTENSION
     Dosage: DAILY DOSE 80MG
  3. MAGNESIUM OXIDE. [Concomitant]
     Active Substance: MAGNESIUM OXIDE
     Indication: GASTROOESOPHAGEAL REFLUX DISEASE
     Dosage: DAILY DOSE 320MG
  4. HYDROXYUREA. [Suspect]
     Active Substance: HYDROXYUREA
     Indication: ESSENTIAL THROMBOCYTHAEMIA
     Dosage: UNK
     Dates: end: 20131202
  5. RANITIDINE [Concomitant]
     Active Substance: RANITIDINE\RANITIDINE HYDROCHLORIDE
     Indication: GASTROOESOPHAGEAL REFLUX DISEASE
     Dosage: DAILY DOSE 150MG
  6. SPIRONOLACTONE. [Concomitant]
     Active Substance: SPIRONOLACTONE
     Indication: PULMONARY HYPERTENSION
     Dosage: DAILY DOSE 200MG
  7. FERROUS GLUCONATE [Concomitant]
     Active Substance: FERROUS GLUCONATE
     Indication: ANAEMIA
     Dosage: DAILY DOSE 300MG
  8. ASPRIN [Suspect]
     Active Substance: ASPIRIN
     Indication: OSTEOARTHRITIS
     Dosage: DAILY DOSE 81MG
     Route: 048
     Dates: start: 200311, end: 20131122

REACTIONS (18)
  - Muscle strain [None]
  - Oedema [None]
  - Dyspnoea [None]
  - Myelofibrosis [None]
  - Joint swelling [None]
  - Right ventricular failure [Recovered/Resolved]
  - Anaemia [Recovered/Resolved]
  - Epistaxis [None]
  - Blood pressure abnormal [None]
  - Pancytopenia [None]
  - Fatigue [None]
  - Arthritis [None]
  - Oedema peripheral [None]
  - Cardiorenal syndrome [None]
  - Fluid overload [None]
  - Pulmonary hypertension [Recovered/Resolved]
  - Polyarthritis [Not Recovered/Not Resolved]
  - Hyponatraemia [None]

NARRATIVE: CASE EVENT DATE: 2012
